FAERS Safety Report 15611176 (Version 1)
Quarter: 2018Q4

REPORT INFORMATION
  Report Type: Spontaneous
  Country: US (occurrence: US)
  Receive Date: 20181107
  Receipt Date: 20181107
  Transmission Date: 20190205
  Serious: Yes (Hospitalization)
  Sender: FDA-Public Use
  Company Number: None

PATIENT
  Age: 59 Year
  Sex: Female
  Weight: 83.7 kg

DRUGS (2)
  1. CARBOPLATIN. [Suspect]
     Active Substance: CARBOPLATIN
     Dates: end: 20181008
  2. DOXIL [Suspect]
     Active Substance: DOXORUBICIN HYDROCHLORIDE
     Dates: end: 20181008

REACTIONS (8)
  - Metastases to liver [None]
  - Small intestine carcinoma [None]
  - Therapy cessation [None]
  - Intestinal perforation [None]
  - Gastrointestinal necrosis [None]
  - Metastatic neoplasm [None]
  - Malignant neoplasm progression [None]
  - Unevaluable event [None]

NARRATIVE: CASE EVENT DATE: 20181101
